FAERS Safety Report 9726579 (Version 1)
Quarter: 2013Q4

REPORT INFORMATION
  Report Type: Spontaneous
  Country: JP (occurrence: JP)
  Receive Date: 20131203
  Receipt Date: 20131203
  Transmission Date: 20140711
  Serious: Yes (Hospitalization, Disabling)
  Sender: FDA-Public Use
  Company Number: JP-GLAXOSMITHKLINE-B0880048A

PATIENT
  Age: 42 Year
  Sex: Female
  Weight: 40 kg

DRUGS (3)
  1. HYCAMTIN [Suspect]
     Indication: OVARIAN CANCER RECURRENT
     Dosage: 1.25MGM2 PER DAY
     Route: 042
     Dates: start: 20121009, end: 20121013
  2. ALOXI [Concomitant]
     Dosage: .75MG PER DAY
     Route: 042
     Dates: start: 20121009, end: 20121009
  3. GEMCITABINE [Concomitant]
     Dates: start: 20120517, end: 20120823

REACTIONS (5)
  - White blood cell count decreased [Recovered/Resolved]
  - Anaemia [Not Recovered/Not Resolved]
  - Platelet count decreased [Recovered/Resolved]
  - Pyrexia [Recovered/Resolved]
  - Haemoglobin decreased [Not Recovered/Not Resolved]
